FAERS Safety Report 9557679 (Version 1)
Quarter: 2013Q3

REPORT INFORMATION
  Report Type: Spontaneous
  Country: AU (occurrence: AU)
  Receive Date: 20130926
  Receipt Date: 20130926
  Transmission Date: 20140515
  Serious: Yes (Life-Threatening, Other)
  Sender: FDA-Public Use
  Company Number: AU-ASTRAZENECA-2013SE71207

PATIENT
  Age: 70 Year
  Sex: Male

DRUGS (7)
  1. ATACAND [Suspect]
     Route: 048
     Dates: start: 20080901
  2. MINAX [Suspect]
     Dates: start: 20070101, end: 2008
  3. MINAX [Suspect]
     Dates: start: 2008
  4. EFEXOR-XR [Interacting]
     Route: 048
     Dates: start: 20080101, end: 20130814
  5. ASASANTIN SR [Suspect]
     Dosage: UNKNOWN DOSE TWO TIMES DAILY
     Route: 048
     Dates: start: 2008
  6. LIPITOR [Suspect]
     Route: 048
     Dates: start: 20090101
  7. CADUET [Interacting]
     Dosage: 10/80 ONE IN THE EVENING DAILY
     Route: 048
     Dates: start: 20090101, end: 20130708

REACTIONS (8)
  - Drug interaction [Unknown]
  - Suicide attempt [Not Recovered/Not Resolved]
  - Claustrophobia [Not Recovered/Not Resolved]
  - Panic disorder [Not Recovered/Not Resolved]
  - Blood pressure increased [Not Recovered/Not Resolved]
  - Depression [Not Recovered/Not Resolved]
  - Anxiety [Not Recovered/Not Resolved]
  - Hyperhidrosis [Not Recovered/Not Resolved]
